FAERS Safety Report 10597700 (Version 1)
Quarter: 2014Q4

REPORT INFORMATION
  Report Type: Spontaneous
  Country: CA (occurrence: CA)
  Receive Date: 20141121
  Receipt Date: 20141121
  Transmission Date: 20150529
  Serious: Yes (Disabling, Other)
  Sender: FDA-Public Use
  Company Number: CA-AMGEN-CANSP2014090424

PATIENT
  Age: 66 Year
  Sex: Female
  Weight: 74 kg

DRUGS (12)
  1. PROLIA [Suspect]
     Active Substance: DENOSUMAB
     Indication: PRODUCT USED FOR UNKNOWN INDICATION
     Dosage: 60 MG, UNK
     Route: 058
  2. NOVO-PREDNISONE [Concomitant]
     Active Substance: PREDNISONE
     Dosage: 5 MG, UNK
  3. OXEZE [Concomitant]
     Dosage: 12 MCG/AEM
  4. ASA [Concomitant]
     Active Substance: ASPIRIN
  5. VITAMIN D                          /00107901/ [Concomitant]
     Active Substance: ERGOCALCIFEROL
  6. APO CANDESARTAN [Concomitant]
     Dosage: UNK
  7. NOVO-LORAZEM [Concomitant]
     Dosage: 1 MG, UNK
  8. RATIO-SALBUTAMOL                   /00139501/ [Concomitant]
     Dosage: UNK
     Route: 045
  9. METFORMIN [Concomitant]
     Active Substance: METFORMIN HYDROCHLORIDE
     Dosage: UNK
  10. FLOVENT HFA [Concomitant]
     Active Substance: FLUTICASONE PROPIONATE
     Dosage: UNK
  11. NOVAMOXIN [Concomitant]
  12. ONE TOUCH [Concomitant]
     Dosage: UNK
     Route: 061

REACTIONS (2)
  - Oesophageal candidiasis [Recovering/Resolving]
  - Dysphagia [Recovering/Resolving]
